FAERS Safety Report 5150683-6 (Version None)
Quarter: 2006Q4

REPORT INFORMATION
  Report Type: 
  Country: None (occurrence: None)
  Receive Date: 20061108
  Receipt Date: 20061102
  Transmission Date: 20070319
  Serious: Yes (Hospitalization, Other)
  Sender: FDA-Public Use
  Company Number: HQWYE628101AUG06

PATIENT
  Age: 23 Year
  Sex: Male

DRUGS (6)
  1. MYLOTARG [Suspect]
     Indication: ACUTE MYELOID LEUKAEMIA
     Dosage: A SINGLE 9 MG/M^2 DOSE INTRAVENOUS DRIP
     Route: 041
     Dates: start: 20060511, end: 20060511
  2. MYLOTARG [Suspect]
     Indication: LEUKAEMIA RECURRENT
     Dosage: A SINGLE 9 MG/M^2 DOSE INTRAVENOUS DRIP
     Route: 041
     Dates: start: 20060511, end: 20060511
  3. SELBEX (TEPRENONE) [Concomitant]
  4. GASMOTIN (MOSAPRIDE CITRATE) [Concomitant]
  5. TOSUFLOXACIN TOSILATE (TOSUFLOXACIN TOSILATE) [Concomitant]
  6. DIFLUCAN [Concomitant]

REACTIONS (9)
  - ALANINE AMINOTRANSFERASE INCREASED [None]
  - ASPARTATE AMINOTRANSFERASE INCREASED [None]
  - BLOOD CREATINE PHOSPHOKINASE INCREASED [None]
  - BLOOD LACTATE DEHYDROGENASE INCREASED [None]
  - FEBRILE NEUTROPENIA [None]
  - LIVER DISORDER [None]
  - LYMPHADENITIS [None]
  - NAUSEA [None]
  - PLATELET COUNT DECREASED [None]
